FAERS Safety Report 7598166-8 (Version None)
Quarter: 2011Q3

REPORT INFORMATION
  Report Type: 
  Country: None (occurrence: None)
  Receive Date: 20110708
  Receipt Date: 20110630
  Transmission Date: 20111222
  Serious: Yes (Life-Threatening)
  Sender: FDA-Public Use
  Company Number: JP-CELGENEUS-087-21880-11070022

PATIENT
  Sex: Male

DRUGS (20)
  1. PURSENNID [Concomitant]
     Dosage: 2 TABLET
     Route: 048
     Dates: start: 20110317
  2. SODIUM CHLORIDE [Concomitant]
     Dosage: 20 MILLILITER
     Route: 041
     Dates: start: 20110317, end: 20110331
  3. DEXAMETHASONE [Suspect]
     Indication: MULTIPLE MYELOMA
     Dosage: 80 MILLIGRAM
     Route: 048
     Dates: start: 20110317, end: 20110320
  4. MONILAC [Concomitant]
     Dosage: 30 MILLILITER
     Route: 048
     Dates: start: 20110317
  5. FENTANYL [Concomitant]
     Route: 065
     Dates: start: 20110317
  6. CEFPIROME SULFATE [Concomitant]
     Dosage: 2 GRAM
     Route: 041
     Dates: start: 20110317, end: 20110323
  7. ROHYPNOL [Concomitant]
     Dosage: 1 MILLIGRAM
     Route: 048
     Dates: start: 20110317
  8. LACTEC G [Concomitant]
     Dosage: 500 MILLILITER
     Route: 041
     Dates: start: 20110317, end: 20110331
  9. FENTANYL [Concomitant]
     Route: 051
     Dates: start: 20110317, end: 20110331
  10. REVLIMID [Suspect]
     Dosage: 10 MILLIGRAM
     Route: 048
     Dates: start: 20010328, end: 20110331
  11. BIOFERMIN R [Concomitant]
     Dosage: 3 GRAM
     Route: 048
     Dates: start: 20110317
  12. CELECOXIB [Concomitant]
     Dosage: 200 GRAM
     Route: 048
     Dates: start: 20110322
  13. NOVORAPID [Concomitant]
     Route: 065
     Dates: start: 20110317, end: 20110412
  14. DEXAMETHASONE [Suspect]
     Dosage: 80 MILLIGRAM
     Route: 048
     Dates: start: 20110325, end: 20110328
  15. TRAZODONE HYDROCHLORIDE [Concomitant]
     Dosage: 25 MILLIGRAM
     Route: 048
     Dates: start: 20110317
  16. PANTETHINE [Concomitant]
     Dosage: 200 MILLIGRAM
     Route: 041
     Dates: start: 20110317, end: 20110331
  17. REVLIMID [Suspect]
     Indication: MULTIPLE MYELOMA
     Dosage: 10 MILLIGRAM
     Route: 048
     Dates: start: 20110317, end: 20110322
  18. MAGNESIUM SULFATE [Concomitant]
     Dosage: 1500 MILLIGRAM
     Route: 048
     Dates: start: 20110317
  19. VITAMEDIN [Concomitant]
     Route: 041
     Dates: start: 20110317, end: 20110331
  20. OXINORM [Concomitant]
     Dosage: 5 GRAM
     Route: 065
     Dates: start: 20110317

REACTIONS (4)
  - SEPTIC SHOCK [None]
  - NEUTROPENIA [None]
  - BRONCHITIS [None]
  - DERMATITIS [None]
